FAERS Safety Report 16438288 (Version 1)
Quarter: 2019Q2

REPORT INFORMATION
  Report Type: Spontaneous
  Country: JP (occurrence: JP)
  Receive Date: 20190617
  Receipt Date: 20190617
  Transmission Date: 20190711
  Serious: Yes (Hospitalization, Other)
  Sender: FDA-Public Use
  Company Number: JP-SUN PHARMACEUTICAL INDUSTRIES LTD-2019R1-209957

PATIENT
  Age: 17 Year
  Sex: Female
  Weight: 13.8 kg

DRUGS (5)
  1. SODIUM VALPROATE [Suspect]
     Active Substance: VALPROATE SODIUM
     Indication: EPILEPSY
     Dosage: UNK
     Route: 048
  2. POLAPREZINC [Suspect]
     Active Substance: POLAPREZINC
     Indication: MINERAL SUPPLEMENTATION
     Dosage: 0.5 MILLIGRAM, DAILY
     Route: 048
  3. TEGRETOL [Suspect]
     Active Substance: CARBAMAZEPINE
     Indication: EPILEPSY
     Dosage: UNK
     Route: 065
  4. RACOL [Concomitant]
     Active Substance: AMINO ACIDS\DEXTROSE\ELECTROLYTES NOS
     Dosage: 800 MILLILITER, DAILY
     Route: 065
  5. RISPERIDONE. [Suspect]
     Active Substance: RISPERIDONE
     Indication: PRODUCT USED FOR UNKNOWN INDICATION
     Dosage: UNK
     Route: 065

REACTIONS (10)
  - Infection [Unknown]
  - White blood cell count decreased [Recovering/Resolving]
  - Gastrooesophageal reflux disease [Unknown]
  - Blood zinc increased [Unknown]
  - Superior mesenteric artery syndrome [Unknown]
  - Anaemia macrocytic [Unknown]
  - Pneumonia aspiration [Unknown]
  - Neutrophil count decreased [Recovering/Resolving]
  - Copper deficiency [Unknown]
  - Condition aggravated [Unknown]
